FAERS Safety Report 17451662 (Version 2)
Quarter: 2020Q2

REPORT INFORMATION
  Report Type: Report from Study
  Country: GB (occurrence: GB)
  Receive Date: 20200224
  Receipt Date: 20200407
  Transmission Date: 20200713
  Serious: Yes (Life-Threatening, Other)
  Sender: FDA-Public Use
  Company Number: GB-UCBSA-2020006633

PATIENT
  Age: 34 Year
  Sex: Male

DRUGS (1)
  1. BRIVARACETAM [Suspect]
     Active Substance: BRIVARACETAM
     Indication: EPILEPSY
     Dosage: 75 MILLIGRAM, 2X/DAY (BID)
     Route: 048
     Dates: start: 20170531

REACTIONS (11)
  - Tension [Unknown]
  - Depressed mood [Unknown]
  - Drug ineffective [Unknown]
  - Focal dyscognitive seizures [Not Recovered/Not Resolved]
  - Irritability [Recovering/Resolving]
  - Aggression [Recovering/Resolving]
  - Seizure [Unknown]
  - Frustration tolerance decreased [Unknown]
  - Suicide attempt [Recovered/Resolved]
  - Intentional overdose [Unknown]
  - Generalised tonic-clonic seizure [Not Recovered/Not Resolved]

NARRATIVE: CASE EVENT DATE: 201909
